FAERS Safety Report 4484703-9 (Version None)
Quarter: 2004Q4

REPORT INFORMATION
  Report Type: 
  Country: None (occurrence: None)
  Receive Date: 20041022
  Receipt Date: 20041006
  Transmission Date: 20050328
  Serious: Yes (Death)
  Sender: FDA-Public Use
  Company Number: 2004AL000529

PATIENT
  Age: 47 Year

DRUGS (3)
  1. DIAZEPAM [Suspect]
     Dosage: PO
     Route: 048
  2. FENTANYL [Suspect]
     Dosage: PO
     Route: 048
  3. OXYCODONE [Suspect]
     Dosage: PO
     Route: 048

REACTIONS (3)
  - CARDIO-RESPIRATORY ARREST [None]
  - COMPLETED SUICIDE [None]
  - MULTIPLE DRUG OVERDOSE [None]
